FAERS Safety Report 4757315-7 (Version None)
Quarter: 2005Q3

REPORT INFORMATION
  Report Type: 
  Country: None (occurrence: None)
  Receive Date: 20050829
  Receipt Date: 20050816
  Transmission Date: 20060218
  Serious: Yes (Hospitalization)
  Sender: FDA-Public Use
  Company Number: 2005116062

PATIENT
  Sex: Female

DRUGS (1)
  1. CLINDAMYCIN HYDROCHLORIDE [Suspect]
     Indication: CAESAREAN SECTION
     Dosage: SEE IMAGE
     Route: 042

REACTIONS (3)
  - POSTOPERATIVE WOUND COMPLICATION [None]
  - PURULENT DISCHARGE [None]
  - WOUND DEHISCENCE [None]
